FAERS Safety Report 11168497 (Version 1)
Quarter: 2015Q2

REPORT INFORMATION
  Report Type: Spontaneous
  Country: JP (occurrence: JP)
  Receive Date: 20150605
  Receipt Date: 20150605
  Transmission Date: 20150821
  Serious: Yes (Death)
  Sender: FDA-Public Use
  Company Number: JP-TEVA-566516ISR

PATIENT
  Sex: Male
  Weight: 49 kg

DRUGS (10)
  1. E-FEN BUCCAL [Suspect]
     Active Substance: FENTANYL CITRATE
     Indication: BREAKTHROUGH PAIN
     Route: 002
     Dates: start: 20150302, end: 20150303
  2. E-FEN BUCCAL [Suspect]
     Active Substance: FENTANYL CITRATE
     Dosage: 100 MICROGRAM DAILY;
     Route: 002
     Dates: start: 20150309, end: 20150408
  3. LOBU [Concomitant]
     Active Substance: LOBUCAVIR
     Indication: CANCER PAIN
     Dosage: 60 MILLIGRAM DAILY;
     Route: 048
     Dates: start: 20150302, end: 20150404
  4. IRINOTECAN HYDROCHLORIDE HYDRATE [Concomitant]
     Active Substance: IRINOTECAN HYDROCHLORIDE
     Indication: CHEMOTHERAPY
     Route: 065
     Dates: start: 20141128
  5. FENTOS [Concomitant]
     Active Substance: FENTANYL
     Dosage: 6 MILLIGRAM DAILY;
     Route: 062
     Dates: start: 20150327, end: 20150401
  6. TS-1 [Concomitant]
     Active Substance: GIMERACIL\OTERACIL\TEGAFUR
     Indication: CHEMOTHERAPY
     Route: 065
     Dates: start: 20141128
  7. VECTIBIX [Concomitant]
     Active Substance: PANITUMUMAB
     Indication: CHEMOTHERAPY
     Route: 065
     Dates: start: 20141128
  8. FENTOS [Concomitant]
     Active Substance: FENTANYL
     Dosage: 8 MILLIGRAM DAILY;
     Route: 062
     Dates: start: 20150402, end: 20150408
  9. LYRICA [Concomitant]
     Active Substance: PREGABALIN
     Indication: CANCER PAIN
     Dosage: 25 MILLIGRAM DAILY;
     Route: 048
     Dates: start: 20150302, end: 20150404
  10. FENTOS [Concomitant]
     Active Substance: FENTANYL
     Indication: CANCER PAIN
     Dosage: 4 MILLIGRAM DAILY;
     Route: 062
     Dates: start: 20150303, end: 20150326

REACTIONS (1)
  - Colorectal cancer [Fatal]
